FAERS Safety Report 4311989-3 (Version None)
Quarter: 2004Q1

REPORT INFORMATION
  Report Type: 
  Country: None (occurrence: None)
  Receive Date: 20040305
  Receipt Date: 20030821
  Transmission Date: 20041129
  Serious: No
  Sender: FDA-Public Use
  Company Number: US-GLAXOSMITHKLINE-A0422936A

PATIENT
  Age: 64 Year
  Sex: Female

DRUGS (2)
  1. REQUIP [Suspect]
     Indication: PARKINSON'S DISEASE
     Dosage: 1TAB THREE TIMES PER DAY
     Route: 048
     Dates: start: 20021101
  2. ADVIL [Concomitant]

REACTIONS (2)
  - RASH PSORIAFORM [None]
  - SEBORRHOEIC KERATOSIS [None]
